FAERS Safety Report 7554297-X (Version None)
Quarter: 2011Q2

REPORT INFORMATION
  Report Type: 
  Country: None (occurrence: None)
  Receive Date: 20110617
  Receipt Date: 20110609
  Transmission Date: 20111010
  Serious: Yes (Other)
  Sender: FDA-Public Use
  Company Number: US-PFIZER INC-2011127031

PATIENT
  Sex: Female
  Weight: 63.946 kg

DRUGS (1)
  1. FLAGYL [Suspect]
     Indication: VAGINITIS BACTERIAL
     Dosage: 500 MG, 2X/DAY
     Route: 048
     Dates: start: 20110525, end: 20110530

REACTIONS (15)
  - HEART RATE INCREASED [None]
  - ABDOMINAL DISCOMFORT [None]
  - NAUSEA [None]
  - WEIGHT DECREASED [None]
  - INSOMNIA [None]
  - VISION BLURRED [None]
  - THINKING ABNORMAL [None]
  - PALPITATIONS [None]
  - CANDIDIASIS [None]
  - ANXIETY [None]
  - DECREASED APPETITE [None]
  - DRY MOUTH [None]
  - BLOOD PRESSURE INCREASED [None]
  - TREMOR [None]
  - DIARRHOEA [None]
